FAERS Safety Report 13596663 (Version 2)
Quarter: 2017Q3

REPORT INFORMATION
  Report Type: Spontaneous
  Country: US (occurrence: US)
  Receive Date: 20170531
  Receipt Date: 20170705
  Transmission Date: 20171127
  Serious: No
  Sender: FDA-Public Use
  Company Number: US-PFIZER INC-2017239412

PATIENT
  Age: 27 Year
  Sex: Female

DRUGS (2)
  1. MELOXICAM. [Suspect]
     Active Substance: MELOXICAM
     Indication: PAIN
     Dosage: UNK
     Dates: start: 20160926, end: 20161031
  2. CELEBREX [Suspect]
     Active Substance: CELECOXIB
     Indication: PAIN
     Dosage: 200 MG, 1X/DAY
     Route: 048
     Dates: start: 20161128, end: 20170109

REACTIONS (3)
  - Drug ineffective [Unknown]
  - Muscle spasms [Recovered/Resolved]
  - Drug intolerance [Unknown]
